FAERS Safety Report 5841970-4 (Version None)
Quarter: 2008Q3

REPORT INFORMATION
  Report Type: 
  Country: None (occurrence: None)
  Receive Date: 20080812
  Receipt Date: 20080806
  Transmission Date: 20090109
  Serious: Yes (Hospitalization)
  Sender: FDA-Public Use
  Company Number: FR-MERCK-0808FRA00010

PATIENT
  Age: 2 Year
  Sex: Male

DRUGS (7)
  1. IVERMECTIN [Suspect]
     Indication: ACARODERMATITIS
     Route: 048
     Dates: start: 20080611, end: 20080611
  2. IVERMECTIN [Suspect]
     Route: 048
     Dates: start: 20080618, end: 20080618
  3. LORATADINE [Concomitant]
     Route: 048
     Dates: start: 20080611, end: 20080626
  4. BENZYL BENZOATE [Concomitant]
     Indication: ACARODERMATITIS
     Route: 061
     Dates: start: 20080612, end: 20080612
  5. BENZYL BENZOATE [Concomitant]
     Route: 061
     Dates: start: 20080611, end: 20080611
  6. BETAMETHASONE DIPROPIONATE [Concomitant]
     Route: 061
     Dates: start: 20080614, end: 20080622
  7. GLYCERIN AND MINERAL OIL AND PETROLATUM, WHITE [Concomitant]
     Route: 061
     Dates: start: 20080614, end: 20080622

REACTIONS (3)
  - HAEMATOMA [None]
  - OEDEMA [None]
  - ROAD TRAFFIC ACCIDENT [None]
